FAERS Safety Report 26186872 (Version 1)
Quarter: 2025Q4

REPORT INFORMATION
  Report Type: Spontaneous
  Country: US (occurrence: None)
  Receive Date: 20251220
  Receipt Date: 20251220
  Transmission Date: 20260118
  Serious: Yes (Death, Hospitalization)
  Sender: FDA-CTU
  Company Number: None

PATIENT
  Age: 67 Year
  Sex: Female
  Weight: 66.7 kg

DRUGS (2)
  1. TEMOZOLOMIDE [Suspect]
     Active Substance: TEMOZOLOMIDE
     Dates: end: 20250711
  2. DEXAMETHASONE [Concomitant]
     Active Substance: DEXAMETHASONE

REACTIONS (11)
  - Diverticulitis intestinal perforated [None]
  - Colonic abscess [None]
  - Thrombocytopenia [None]
  - Catheter site discharge [None]
  - Abdominal abscess [None]
  - Septic shock [None]
  - Hypoxia [None]
  - Leukopenia [None]
  - Brain oedema [None]
  - Colitis [None]
  - Wound necrosis [None]

NARRATIVE: CASE EVENT DATE: 20250825
